FAERS Safety Report 4318590-6 (Version None)
Quarter: 2004Q1

REPORT INFORMATION
  Report Type: 
  Country: None (occurrence: None)
  Receive Date: 20040316
  Receipt Date: 20040316
  Transmission Date: 20041129
  Serious: Yes (Other)
  Sender: FDA-Public Use
  Company Number: None

PATIENT
  Age: 53 Year
  Sex: Female
  Weight: 58 kg

DRUGS (3)
  1. MAGNEVIST [Suspect]
     Dosage: 12 ML IV
     Route: 042
     Dates: start: 20031209
  2. ALENDRONATE SODIUM [Concomitant]
  3. SYNTHROID [Concomitant]

REACTIONS (3)
  - COUGH [None]
  - FEELING ABNORMAL [None]
  - RESPIRATORY DISTRESS [None]
